FAERS Safety Report 7313195-7 (Version None)
Quarter: 2011Q1

REPORT INFORMATION
  Report Type: 
  Country: None (occurrence: None)
  Receive Date: 20110215
  Receipt Date: 20110215
  Transmission Date: 20110831
  Serious: No
  Sender: FDA-Public Use
  Company Number: None

PATIENT

DRUGS (1)
  1. STANNOUS FLUORIDE TOOTHPASTE [Suspect]
     Dates: start: 20101002, end: 20101016

REACTIONS (5)
  - PARAESTHESIA ORAL [None]
  - TONGUE BLISTERING [None]
  - AGEUSIA [None]
  - BLISTER [None]
  - TONGUE DISORDER [None]
